FAERS Safety Report 7129931-9 (Version None)
Quarter: 2010Q4

REPORT INFORMATION
  Report Type: 
  Country: None (occurrence: None)
  Receive Date: 20101130
  Receipt Date: 20100525
  Transmission Date: 20110411
  Serious: No
  Sender: FDA-Public Use
  Company Number: US-AMGEN-KDL414271

PATIENT

DRUGS (4)
  1. ARANESP [Suspect]
     Indication: CARDIAC FAILURE
     Dosage: 100 A?G, QWK
     Dates: start: 20100503, end: 20100524
  2. HEPARIN [Concomitant]
     Dosage: UNK UNK, UNK
  3. PARICALCITOL [Concomitant]
     Dosage: UNK UNK, UNK
  4. VENOFER [Concomitant]
     Dosage: UNK UNK, UNK

REACTIONS (1)
  - HEADACHE [None]
